FAERS Safety Report 7520706-5 (Version None)
Quarter: 2011Q2

REPORT INFORMATION
  Report Type: 
  Country: None (occurrence: None)
  Receive Date: 20110603
  Receipt Date: 20110526
  Transmission Date: 20111010
  Serious: Yes (Death, Disabling, Other)
  Sender: FDA-Public Use
  Company Number: JP-BRISTOL-MYERS SQUIBB COMPANY-15651169

PATIENT
  Age: 61 Year
  Sex: Female

DRUGS (12)
  1. PREDNISONE [Concomitant]
     Dosage: 3 MONTHS BEFORE STARTED-
     Route: 048
     Dates: end: 20110328
  2. SOLU-MEDROL [Concomitant]
     Route: 048
     Dates: start: 20110313, end: 20110314
  3. FOLIC ACID [Concomitant]
  4. SIGMART [Concomitant]
     Indication: ANGINA PECTORIS
  5. MICARDIS [Concomitant]
     Indication: HYPERTENSION
  6. BETAMETHASONE [Concomitant]
     Dosage: 16MG/DAY(15MAR2011-16MAR2011 8MG/DAY(17MAR2011-ONGOING
     Route: 048
     Dates: start: 20110315
  7. LIVALO [Concomitant]
     Indication: HYPERLIPIDAEMIA
  8. ORENCIA [Suspect]
     Indication: RHEUMATOID ARTHRITIS
     Dosage: 27NOV,11DEC10,8JAN,12FEB,12MAR11 LAST DOSE ON 12MAR2011
     Route: 041
     Dates: start: 20101113
  9. ACTONEL [Concomitant]
     Indication: OSTEOPOROSIS
  10. FRANDOL TAPE S [Concomitant]
     Indication: ANGINA PECTORIS
  11. METHOTREXATE [Concomitant]
     Dates: end: 20110328
  12. ISOSORBIDE DINITRATE [Concomitant]
     Indication: ANGINA PECTORIS

REACTIONS (5)
  - BLOOD SODIUM DECREASED [None]
  - DISLOCATION OF VERTEBRA [None]
  - WHITE BLOOD CELL COUNT INCREASED [None]
  - ALTERED STATE OF CONSCIOUSNESS [None]
  - C-REACTIVE PROTEIN INCREASED [None]
